FAERS Safety Report 12313985 (Version 1)
Quarter: 2016Q2

REPORT INFORMATION
  Report Type: Spontaneous
  Country: US (occurrence: None)
  Receive Date: 20160427
  Receipt Date: 20160427
  Transmission Date: 20160815
  Serious: No
  Sender: FDA-Public Use
  Company Number: None

PATIENT
  Age: 68 Year
  Sex: Male

DRUGS (1)
  1. LUPRON DEPOT [Suspect]
     Active Substance: LEUPROLIDE ACETATE
     Indication: PROSTATE CANCER
     Dosage: LUPRON DEPOT 22.5MG EVERY 3 MONTHS IM
     Route: 030
     Dates: start: 20140327

REACTIONS (1)
  - Back pain [None]

NARRATIVE: CASE EVENT DATE: 20160425
